FAERS Safety Report 9494111 (Version 1)
Quarter: 2013Q3

REPORT INFORMATION
  Report Type: Spontaneous
  Country: GB (occurrence: None)
  Receive Date: 20130827
  Receipt Date: 20130827
  Transmission Date: 20140515
  Serious: Yes (Hospitalization)
  Sender: FDA-Public Use
  Company Number: GER/UKI/13/0034196

PATIENT
  Age: 89 Year
  Sex: Female

DRUGS (9)
  1. CLOPIDOGREL (CLOPIDOGREL) [Suspect]
     Indication: PRODUCT USED FOR UNKNOWN INDICATION
     Dosage: 75 MG, 1 IN 1 D, PO
     Route: 048
  2. ASPIRIN (ACETYLSALICYLIC ACID) [Suspect]
     Indication: PRODUCT USED FOR UNKNOWN INDICATION
     Dosage: 75 MG, 1 IN 1 D, PO
     Route: 048
  3. DIGOXIN (DIGOXIN) [Concomitant]
  4. FLUDROCORTISONE (FLUDROCORTISONE) [Concomitant]
  5. LEVOTHYROXINE (LEVOTHYROXINE) [Concomitant]
  6. OMEPRAZOLE (OMEPRAZOLE) [Concomitant]
  7. QUETIAPINE (QUETIAPINE) [Concomitant]
  8. SODIUM BICARBONATE (SODIUM BICARBONATE) [Concomitant]
  9. ZOPICLONE (ZOPICLONE) [Concomitant]

REACTIONS (2)
  - Dyspnoea [None]
  - Anaemia [None]
